FAERS Safety Report 7296882-9 (Version None)
Quarter: 2011Q1

REPORT INFORMATION
  Report Type: 
  Country: None (occurrence: None)
  Receive Date: 20110204
  Receipt Date: 20110123
  Transmission Date: 20110831
  Serious: Yes (Death)
  Sender: FDA-Public Use
  Company Number: 1785

PATIENT
  Age: 27 Day
  Sex: Female
  Weight: 0.7 kg

DRUGS (8)
  1. IMIPENEM [Concomitant]
  2. AMIKACIN [Concomitant]
  3. FUROSEMIDE [Concomitant]
  4. CEFOTAXIME [Concomitant]
  5. ORNIDAZOLE [Concomitant]
  6. AMPICILLIN [Concomitant]
  7. ECONAZOLE NITRATE [Suspect]
     Indication: SKIN LESION
     Dosage: TOPICAL
     Route: 061
  8. DOPAMINE [Concomitant]

REACTIONS (6)
  - BLOOD CULTURE POSITIVE [None]
  - GENERALISED OEDEMA [None]
  - TRACHEAL HAEMORRHAGE [None]
  - ANURIA [None]
  - WEIGHT INCREASED [None]
  - GASTROINTESTINAL HAEMORRHAGE [None]
